FAERS Safety Report 4545771-9 (Version None)
Quarter: 2005Q1

REPORT INFORMATION
  Report Type: 
  Country: None (occurrence: None)
  Receive Date: 20050106
  Receipt Date: 20041227
  Transmission Date: 20050727
  Serious: Yes (Hospitalization)
  Sender: FDA-Public Use
  Company Number: JP-JNJFOC-20040201528

PATIENT
  Sex: Female
  Weight: 49 kg

DRUGS (18)
  1. REMICADE [Suspect]
     Route: 041
  2. REMICADE [Suspect]
     Route: 041
  3. REMICADE [Suspect]
     Route: 041
  4. REMICADE [Suspect]
     Route: 041
  5. REMICADE [Suspect]
     Route: 041
  6. REMICADE [Suspect]
     Route: 041
  7. REMICADE [Suspect]
     Route: 041
  8. REMICADE [Suspect]
     Route: 041
  9. REMICADE [Suspect]
     Indication: RHEUMATOID ARTHRITIS
     Route: 041
  10. RHEUMATREX [Concomitant]
     Route: 049
  11. RHEUMATREX [Concomitant]
     Route: 049
  12. RHEUMATREX [Concomitant]
     Indication: RHEUMATOID ARTHRITIS
     Route: 049
  13. PREDONINE [Concomitant]
     Indication: RHEUMATOID ARTHRITIS
     Route: 049
  14. VOLTAREN [Concomitant]
     Indication: RHEUMATOID ARTHRITIS
     Route: 049
  15. CYTOTEC [Concomitant]
     Route: 049
  16. BIOFERMIN [Concomitant]
     Route: 049
  17. BIOFERMIN [Concomitant]
     Route: 049
  18. BIOFERMIN [Concomitant]
     Route: 049

REACTIONS (8)
  - ANAPHYLACTOID REACTION [None]
  - DRUG SPECIFIC ANTIBODY PRESENT [None]
  - FATIGUE [None]
  - NAUSEA [None]
  - PYREXIA [None]
  - RASH [None]
  - SHOCK [None]
  - SWELLING FACE [None]
